FAERS Safety Report 8831108 (Version 1)
Quarter: 2012Q4

REPORT INFORMATION
  Report Type: 
  Country: FR (occurrence: FR)
  Receive Date: 20121009
  Receipt Date: 20121009
  Transmission Date: 20130627
  Serious: Yes (Hospitalization)
  Sender: FDA-Public Use
  Company Number: FR-PFIZER INC-2012244695

PATIENT
  Age: 66 Year
  Sex: Male

DRUGS (11)
  1. FLUOROURACILE PFIZER [Suspect]
     Indication: PANCREATIC CARCINOMA
     Dosage: 100 percent dose
     Dates: start: 20120228
  2. FLUOROURACILE PFIZER [Suspect]
     Dosage: 75 percent dose
     Dates: start: 20120404
  3. FLUOROURACILE PFIZER [Suspect]
     Dosage: 50 percent dose
     Dates: start: 20120509, end: 20120608
  4. OXALIPLATIN TEVA [Suspect]
     Indication: PANCREATIC CARCINOMA
     Dosage: 100 percent dose
     Dates: start: 20120228
  5. OXALIPLATIN TEVA [Suspect]
     Dosage: 75 percent dose
     Dates: start: 20120404
  6. OXALIPLATIN TEVA [Suspect]
     Dosage: 50 percent dose
     Dates: start: 20120509, end: 20120608
  7. IRINOTECAN [Suspect]
     Indication: PANCREATIC CARCINOMA
     Dosage: UNK
     Dates: start: 20120228, end: 20120608
  8. OXYNORM [Concomitant]
  9. DUROGESIC [Concomitant]
  10. APOREX [Concomitant]
  11. NEULASTA [Concomitant]

REACTIONS (5)
  - Vomiting [Recovered/Resolved]
  - Abdominal pain upper [Recovered/Resolved]
  - Diarrhoea [Unknown]
  - Disease progression [Unknown]
  - Pancreatic carcinoma [Unknown]
